FAERS Safety Report 20015371 (Version 1)
Quarter: 2021Q4

REPORT INFORMATION
  Report Type: Spontaneous
  Country: US (occurrence: None)
  Receive Date: 20211029
  Receipt Date: 20211029
  Transmission Date: 20220303
  Serious: Yes (Life-Threatening)
  Sender: FDA-Public Use
  Company Number: None

PATIENT
  Age: 61 Year
  Sex: Male

DRUGS (1)
  1. SODIUM FERRIC GLUCONATE COMPLEX [Suspect]
     Active Substance: SODIUM FERRIC GLUCONATE COMPLEX
     Indication: Iron deficiency
     Dosage: FREQUENCY : ONCE;?
     Route: 042
     Dates: start: 20211015, end: 20211015

REACTIONS (4)
  - Diarrhoea [None]
  - Hypotension [None]
  - Syncope [None]
  - Hyperhidrosis [None]

NARRATIVE: CASE EVENT DATE: 20211018
